FAERS Safety Report 15556804 (Version 1)
Quarter: 2018Q4

REPORT INFORMATION
  Report Type: Spontaneous
  Country: IN (occurrence: IN)
  Receive Date: 20181026
  Receipt Date: 20181026
  Transmission Date: 20190205
  Serious: Yes (Other)
  Sender: FDA-Public Use
  Company Number: IN-SAKK-2018SA295692AA

PATIENT
  Age: 47 Year
  Sex: Female

DRUGS (2)
  1. DOCETAXEL. [Suspect]
     Active Substance: DOCETAXEL
     Indication: CHEMOTHERAPY
     Dosage: UNK (INJECTION)
  2. DOCETAXEL. [Suspect]
     Active Substance: DOCETAXEL
     Indication: INVASIVE LOBULAR BREAST CARCINOMA

REACTIONS (11)
  - Skin erosion [Recovered/Resolved]
  - Rash erythematous [Recovered/Resolved]
  - Nail discolouration [Recovered/Resolved]
  - Epidermal necrosis [Recovered/Resolved]
  - Skin exfoliation [Recovered/Resolved]
  - Nicotinic acid deficiency [Recovered/Resolved]
  - Skin lesion [Recovered/Resolved]
  - Alopecia totalis [Recovered/Resolved]
  - Oedema [Recovered/Resolved]
  - Skin fissures [Recovered/Resolved]
  - Eczema [Recovered/Resolved]
